FAERS Safety Report 7931671-0 (Version None)
Quarter: 2011Q4

REPORT INFORMATION
  Report Type: 
  Country: None (occurrence: None)
  Receive Date: 20111121
  Receipt Date: 20111110
  Transmission Date: 20120403
  Serious: Yes (Life-Threatening, Hospitalization, Other)
  Sender: FDA-Public Use
  Company Number: PHHO2010DE09086

PATIENT
  Sex: Male
  Weight: 82 kg

DRUGS (17)
  1. URSO FALK [Concomitant]
  2. TURIXIN [Concomitant]
  3. COTRIM DS [Concomitant]
  4. URSODIOL [Concomitant]
     Indication: BILE OUTPUT
  5. CALCIUM CARBONATE [Concomitant]
  6. PANTOPRAZOLE SODIUM [Concomitant]
  7. DIPIDOLOR [Concomitant]
  8. AMLODIPINE [Suspect]
  9. AMPHOTERICIN B [Concomitant]
  10. RAMIPRIL [Concomitant]
  11. TACROLIMUS [Concomitant]
  12. EBRANTIL [Concomitant]
  13. MYCOPHENOLATE MOFETIL (CELLCEPT) [Concomitant]
     Indication: LIVER TRANSPLANT
  14. HYDROCHLOROTHIAZIDE [Concomitant]
  15. CYCLOSPORINE [Suspect]
     Indication: LIVER TRANSPLANT
     Dosage: 125 MG, BID
     Route: 048
     Dates: start: 20090422
  16. METOPROLOL SUCCINATE [Concomitant]
  17. NOVALGIN [Concomitant]

REACTIONS (19)
  - HEADACHE [None]
  - ORAL CANDIDIASIS [None]
  - PERSECUTORY DELUSION [None]
  - CEREBRAL HAEMORRHAGE [None]
  - HEMIPARESIS [None]
  - AGGRESSION [None]
  - GAIT DISTURBANCE [None]
  - SUBDURAL HAEMATOMA [None]
  - AMBLYOPIA [None]
  - NAUSEA [None]
  - AGITATION [None]
  - HYPOTENSION [None]
  - POSTERIOR REVERSIBLE ENCEPHALOPATHY SYNDROME [None]
  - VOMITING [None]
  - BRAIN OEDEMA [None]
  - THROMBOCYTOPENIA [None]
  - BLOOD PRESSURE INCREASED [None]
  - SOMNOLENCE [None]
  - HEMIANOPIA [None]
